FAERS Safety Report 12732733 (Version 1)
Quarter: 2016Q3

REPORT INFORMATION
  Report Type: Spontaneous
  Country: US (occurrence: US)
  Receive Date: 20160910
  Receipt Date: 20160910
  Transmission Date: 20161109
  Serious: Yes (Other)
  Sender: FDA-Public Use
  Company Number: None

PATIENT
  Age: 76 Year
  Sex: Female
  Weight: 78.3 kg

DRUGS (5)
  1. VASCEPA [Suspect]
     Active Substance: ICOSAPENT ETHYL
     Indication: BLOOD TRIGLYCERIDES ABNORMAL
     Route: 048
     Dates: start: 20160101
  2. CALTRATE [Concomitant]
     Active Substance: CALCIUM CARBONATE
  3. LAUREN [Concomitant]
  4. VITAMIN D3 [Concomitant]
     Active Substance: CHOLECALCIFEROL
  5. ZETIA [Concomitant]
     Active Substance: EZETIMIBE

REACTIONS (2)
  - Vascular malformation [None]
  - Skin haemorrhage [None]

NARRATIVE: CASE EVENT DATE: 20160608
